FAERS Safety Report 24010229 (Version 1)
Quarter: 2024Q2

REPORT INFORMATION
  Report Type: Spontaneous
  Country: US (occurrence: US)
  Receive Date: 20240625
  Receipt Date: 20240625
  Transmission Date: 20240716
  Serious: No
  Sender: FDA-Public Use
  Company Number: US-ROCHE-10000003857

PATIENT
  Sex: Female

DRUGS (1)
  1. COLUMVI [Suspect]
     Active Substance: GLOFITAMAB-GXBM
     Indication: Lymphoma transformation
     Dosage: SHE RECEIVED SUSPECT ON C3D1 (DATE UNSPECIFIED)
     Route: 065

REACTIONS (1)
  - Muscular weakness [Unknown]
